FAERS Safety Report 5986821-2 (Version None)
Quarter: 2008Q4

REPORT INFORMATION
  Report Type: 
  Country: None (occurrence: None)
  Receive Date: 20081203
  Receipt Date: 20081125
  Transmission Date: 20090506
  Serious: Yes (Hospitalization)
  Sender: FDA-Public Use
  Company Number: 2005JP001490

PATIENT
  Age: 44 Year
  Sex: Male
  Weight: 47 kg

DRUGS (8)
  1. PROGRAF [Suspect]
     Indication: RENAL TRANSPLANT
     Dosage: 3.75 MG UID/QD, IV NOS
     Route: 042
     Dates: start: 20050222, end: 20050223
  2. PROGRAF [Suspect]
     Indication: RENAL TRANSPLANT
     Dosage: 6 MG BID ORAL
     Route: 048
     Dates: start: 20050223
  3. CELLCEPT (MYCOPHENOLATE MOFETIL) CAPSULE [Concomitant]
  4. MEDROL [Concomitant]
  5. LOSARTAN POTASSIUM [Concomitant]
  6. FAMOTIDINE [Concomitant]
  7. GASTER TABLET [Concomitant]
  8. BREDININ (MIZORBINE) [Concomitant]

REACTIONS (4)
  - BONE MARROW OEDEMA [None]
  - GAIT DISTURBANCE [None]
  - PAIN IN EXTREMITY [None]
  - THROMBOPHLEBITIS SUPERFICIAL [None]
